FAERS Safety Report 5953549-4 (Version None)
Quarter: 2008Q4

REPORT INFORMATION
  Report Type: 
  Country: None (occurrence: None)
  Receive Date: 20081114
  Receipt Date: 20081014
  Transmission Date: 20090506
  Serious: No
  Sender: FDA-Public Use
  Company Number: US-BAYER-200835818NA

PATIENT
  Age: 34 Year
  Sex: Female
  Weight: 69 kg

DRUGS (3)
  1. ULTRAVIST 150 [Suspect]
     Indication: COMPUTERISED TOMOGRAM
     Dosage: TOTAL DAILY DOSE: 120 ML  UNIT DOSE: 500 ML
     Route: 042
     Dates: start: 20081014, end: 20081014
  2. PAXIL [Concomitant]
  3. WELLBUTRIN [Concomitant]

REACTIONS (1)
  - URTICARIA [None]
